FAERS Safety Report 12740659 (Version 1)
Quarter: 2016Q3

REPORT INFORMATION
  Report Type: Spontaneous
  Country: CA (occurrence: CA)
  Receive Date: 20160914
  Receipt Date: 20160914
  Transmission Date: 20161109
  Serious: Yes (Life-Threatening, Hospitalization, Other)
  Sender: FDA-Public Use
  Company Number: CA-009507513-1506CAN005740

PATIENT
  Age: 70 Year
  Sex: Female

DRUGS (6)
  1. EZETROL [Suspect]
     Active Substance: EZETIMIBE
     Indication: HYPERCHOLESTEROLAEMIA
     Dosage: 10MG DAILY
     Route: 048
  2. COZAAR [Concomitant]
     Active Substance: LOSARTAN POTASSIUM
     Dosage: SMALL DOSE. PATIENT THINKS IT^S ABOUT 25 MG BECAUSE IT WAS CUT AT HOSPITAL
     Route: 048
  3. ASPIRIN. [Concomitant]
     Active Substance: ASPIRIN
     Dosage: 81 MG, QD
     Route: 048
  4. FOLIC ACID. [Concomitant]
     Active Substance: FOLIC ACID
     Dosage: 1 MG, UNK
  5. CHOLECALCIFEROL [Concomitant]
     Active Substance: CHOLECALCIFEROL
     Dosage: 2000 MG, UNKNOWN
  6. APO BISOPROLOL [Concomitant]
     Dosage: 5 MG, QD

REACTIONS (2)
  - Myocardial infarction [Unknown]
  - Vertigo [Unknown]

NARRATIVE: CASE EVENT DATE: 20160720
